FAERS Safety Report 25543017 (Version 1)
Quarter: 2025Q3

REPORT INFORMATION
  Report Type: Spontaneous
  Country: US (occurrence: US)
  Receive Date: 20250711
  Receipt Date: 20250711
  Transmission Date: 20251021
  Serious: Yes (Hospitalization)
  Sender: MYLAN
  Company Number: US-MYLANLABS-2025M1056152

PATIENT
  Age: 15 Year
  Sex: Male

DRUGS (4)
  1. HYDROCORTISONE [Suspect]
     Active Substance: HYDROCORTISONE
     Indication: Autoimmune haemolytic anaemia
     Dosage: 300 MILLIGRAM, Q6H
  2. HYDROCORTISONE [Suspect]
     Active Substance: HYDROCORTISONE
     Indication: Evans syndrome
  3. PREDNISONE [Suspect]
     Active Substance: PREDNISONE
     Indication: Autoimmune haemolytic anaemia
     Dosage: 80 MILLIGRAM, TID
  4. PREDNISONE [Suspect]
     Active Substance: PREDNISONE
     Indication: Evans syndrome

REACTIONS (5)
  - Infection reactivation [Recovering/Resolving]
  - Latent tuberculosis [Recovering/Resolving]
  - Evans syndrome [Recovering/Resolving]
  - Condition aggravated [Recovering/Resolving]
  - Disseminated tuberculosis [Recovering/Resolving]
